FAERS Safety Report 6602907-3 (Version None)
Quarter: 2010Q1

REPORT INFORMATION
  Report Type: 
  Country: None (occurrence: None)
  Receive Date: 20100219
  Receipt Date: 20100211
  Transmission Date: 20100710
  Serious: Yes (Hospitalization)
  Sender: FDA-Public Use
  Company Number: WAES 1002USA00149

PATIENT
  Age: 22 Year
  Sex: Male
  Weight: 79.8331 kg

DRUGS (3)
  1. TAB RALTEGRAVIR POTASSIUM [Suspect]
     Indication: HIV INFECTION
     Dosage: 400 MG/BID/PO
     Route: 048
     Dates: start: 20090827
  2. EMTRICITABINE AND TENOFOVIR DISOPROXIL FUMARATE [Suspect]
     Indication: HIV INFECTION
     Dosage: 200 MG/300
     Dates: start: 20090827
  3. RITONAVIR [Suspect]
     Indication: HIV INFECTION
     Dosage: 100 MG/DAILY/PO
     Route: 048
     Dates: start: 20100127

REACTIONS (4)
  - IMMUNE RECONSTITUTION SYNDROME [None]
  - LYMPHADENOPATHY [None]
  - MOVEMENT DISORDER [None]
  - NECK PAIN [None]
